FAERS Safety Report 9686561 (Version 1)
Quarter: 2013Q4

REPORT INFORMATION
  Report Type: Spontaneous
  Country: US (occurrence: US)
  Receive Date: 20131113
  Receipt Date: 20131113
  Transmission Date: 20140711
  Serious: No
  Sender: FDA-Public Use
  Company Number: US-ENDO PHARMACEUTICALS INC.-TRAZ20110008

PATIENT
  Age: 17 Year
  Sex: Male

DRUGS (1)
  1. TRAZODONE HYDROCHLORIDE TABLETS 50MG [Suspect]
     Indication: INSOMNIA
     Route: 048
     Dates: start: 20110718

REACTIONS (2)
  - Abdominal pain upper [Unknown]
  - Vomiting [Unknown]
